FAERS Safety Report 5191999-7 (Version None)
Quarter: 2006Q4

REPORT INFORMATION
  Report Type: 
  Country: None (occurrence: None)
  Receive Date: 20061220
  Receipt Date: 20061204
  Transmission Date: 20070319
  Serious: Yes (Life-Threatening, Hospitalization)
  Sender: FDA-Public Use
  Company Number: 233343

PATIENT
  Age: 56 Year
  Sex: Female
  Weight: 72 kg

DRUGS (3)
  1. AVASTIN [Suspect]
     Indication: COLORECTAL CANCER
     Dosage: 540 MG, QD, INTRAVENOUS
     Route: 042
     Dates: start: 20050908, end: 20060504
  2. CAPECITABINE (CAPECITABINE) [Suspect]
     Indication: COLORECTAL CANCER
     Dosage: 3825 MG, QD, ORAL
     Route: 048
     Dates: start: 20050908, end: 20060504
  3. IRINOTECAN HCL [Suspect]
     Indication: COLORECTAL CANCER
     Dosage: TSP
     Dates: start: 20050908, end: 20060504

REACTIONS (5)
  - COMA [None]
  - FACIAL PALSY [None]
  - HYDROCEPHALUS [None]
  - RUPTURED CEREBRAL ANEURYSM [None]
  - SUBARACHNOID HAEMORRHAGE [None]
